FAERS Safety Report 8150407-4 (Version None)
Quarter: 2012Q1

REPORT INFORMATION
  Report Type: 
  Country: None (occurrence: None)
  Receive Date: 20120220
  Receipt Date: 20120214
  Transmission Date: 20120608
  Serious: Yes (Hospitalization)
  Sender: FDA-Public Use
  Company Number: US-PFIZER INC-2012020524

PATIENT
  Sex: Male

DRUGS (1)
  1. SUTENT [Suspect]
     Indication: RENAL CELL CARCINOMA
     Dosage: 50 MG, 1X/DAY, 4/2 SCHEDULE
     Route: 048
     Dates: start: 20111028

REACTIONS (18)
  - ASTHENIA [None]
  - PRURITUS [None]
  - HYPOTHYROIDISM [None]
  - DECREASED APPETITE [None]
  - DYSPNOEA [None]
  - NAUSEA [None]
  - STOMATITIS [None]
  - EPISTAXIS [None]
  - SKIN DISORDER [None]
  - DEHYDRATION [None]
  - JOINT SWELLING [None]
  - BLOOD MAGNESIUM DECREASED [None]
  - YELLOW SKIN [None]
  - SKIN EXFOLIATION [None]
  - CONVULSION [None]
  - DRY SKIN [None]
  - BLOOD CREATININE INCREASED [None]
  - EMOTIONAL DISORDER [None]
